FAERS Safety Report 6336965-0 (Version None)
Quarter: 2009Q3

REPORT INFORMATION
  Report Type: 
  Country: None (occurrence: None)
  Receive Date: 20090901
  Receipt Date: 20090827
  Transmission Date: 20100115
  Serious: Yes (Hospitalization)
  Sender: FDA-Public Use
  Company Number: US-GENENTECH-281663

PATIENT
  Sex: Male
  Weight: 52.381 kg

DRUGS (3)
  1. BEVACIZUMAB [Suspect]
     Indication: NON-SMALL CELL LUNG CANCER
     Dosage: 510 MG, DAYS 1+15
     Route: 042
     Dates: start: 20090413
  2. ALIMTA [Concomitant]
     Indication: NON-SMALL CELL LUNG CANCER
     Dosage: 800 MG, DAYS 1+15
     Route: 042
     Dates: start: 20090413
  3. GEMZAR [Concomitant]
     Indication: NON-SMALL CELL LUNG CANCER
     Dosage: 2400 MG, DAYS 1+15
     Route: 042
     Dates: start: 20090413

REACTIONS (3)
  - CELLULITIS [None]
  - HERPES ZOSTER [None]
  - STAPHYLOCOCCAL INFECTION [None]
